FAERS Safety Report 14920654 (Version 1)
Quarter: 2018Q2

REPORT INFORMATION
  Report Type: Spontaneous
  Country: NL (occurrence: NL)
  Receive Date: 20180521
  Receipt Date: 20180521
  Transmission Date: 20180711
  Serious: Yes (Congenital Anomaly)
  Sender: FDA-Public Use
  Company Number: NL-ANIPHARMA-2018-NL-000025

PATIENT
  Sex: Female

DRUGS (1)
  1. DEXAMETHASONE (NON-SPECIFIC) [Suspect]
     Active Substance: DEXAMETHASONE
     Route: 015

REACTIONS (3)
  - Learning disorder [Unknown]
  - Memory impairment [Unknown]
  - Cleft lip and palate [Not Recovered/Not Resolved]
